FAERS Safety Report 7215233-9 (Version None)
Quarter: 2011Q1

REPORT INFORMATION
  Report Type: 
  Country: None (occurrence: None)
  Receive Date: 20110107
  Receipt Date: 20101227
  Transmission Date: 20110831
  Serious: Yes (Other)
  Sender: FDA-Public Use
  Company Number: PHHY2010US88951

PATIENT
  Sex: Female
  Weight: 70.748 kg

DRUGS (15)
  1. NEXIUM [Concomitant]
  2. SPIRONOLACTONE [Concomitant]
  3. K-DUR [Concomitant]
  4. BUPROPION [Concomitant]
  5. FEXOFENADINE HCL [Concomitant]
  6. PROBIOTICA [Concomitant]
  7. GLEEVEC [Suspect]
     Dosage: 100 MG, UNK
  8. ALPRAZOLAM [Concomitant]
  9. IMODIUM MULTI-SYMPTOM RELIEF [Concomitant]
  10. ZOLOFT [Concomitant]
  11. ROXICET [Concomitant]
  12. TRAZODONE [Concomitant]
  13. AMILORIDE HYDROCHLORIDE [Concomitant]
  14. CLONIDINE [Concomitant]
  15. HYDROCHLOROTHIAZIDE [Concomitant]

REACTIONS (4)
  - OESOPHAGEAL INFECTION [None]
  - DIARRHOEA [None]
  - GASTRIC ULCER [None]
  - GASTROINTESTINAL INFECTION [None]
